FAERS Safety Report 4388150-X (Version None)
Quarter: 2004Q2

REPORT INFORMATION
  Report Type: 
  Country: None (occurrence: None)
  Receive Date: 20040625
  Receipt Date: 20040614
  Transmission Date: 20050107
  Serious: Yes (Other)
  Sender: FDA-Public Use
  Company Number: 2004-02637

PATIENT
  Age: 54 Year
  Sex: Male

DRUGS (1)
  1. OXYCODONE 5/APAP 500 [Suspect]
     Dosage: INTRAVENOUS
     Route: 042
     Dates: end: 20040610

REACTIONS (6)
  - ANXIETY [None]
  - CONFUSIONAL STATE [None]
  - DRUG ABUSER [None]
  - HYPERHIDROSIS [None]
  - MEDICATION ERROR [None]
  - SELF-MEDICATION [None]
